FAERS Safety Report 15203730 (Version 3)
Quarter: 2019Q4

REPORT INFORMATION
  Report Type: Spontaneous
  Country: US (occurrence: US)
  Receive Date: 20180726
  Receipt Date: 20191204
  Transmission Date: 20200122
  Serious: Yes (Death, Other)
  Sender: FDA-Public Use
  Company Number: US-ELI_LILLY_AND_COMPANY-US201807011168

PATIENT
  Age: 54 Year
  Sex: Male

DRUGS (3)
  1. CIALIS [Suspect]
     Active Substance: TADALAFIL
     Indication: ERECTILE DYSFUNCTION
     Dosage: 20 MG, OTHER (PERIODICALLY)
     Route: 065
     Dates: start: 20100412, end: 20140316
  2. VIAGRA [Suspect]
     Active Substance: SILDENAFIL CITRATE
     Indication: ERECTILE DYSFUNCTION
     Dosage: 100 MG, UNKNOWN
     Route: 065
     Dates: start: 20040324, end: 20040424
  3. VIAGRA [Suspect]
     Active Substance: SILDENAFIL CITRATE
     Dosage: 100 MG, OTHER (PERIODICALLY)
     Route: 065
     Dates: start: 20150107, end: 20170804

REACTIONS (2)
  - Metastatic malignant melanoma [Fatal]
  - Malignant melanoma stage IV [Unknown]

NARRATIVE: CASE EVENT DATE: 20150520
